FAERS Safety Report 18546439 (Version 2)
Quarter: 2020Q4

REPORT INFORMATION
  Report Type: Report from Study
  Country: None (occurrence: CA)
  Receive Date: 20201125
  Receipt Date: 20201202
  Transmission Date: 20210114
  Serious: Yes (Death, Hospitalization, Other)
  Sender: FDA-Public Use
  Company Number: CA-ABBVIE-20K-028-3625900-00

PATIENT
  Sex: Male
  Weight: 126 kg

DRUGS (1)
  1. HUMIRA [Suspect]
     Active Substance: ADALIMUMAB
     Indication: PSORIATIC ARTHROPATHY
     Route: 058
     Dates: start: 20170803, end: 2020

REACTIONS (7)
  - Hepatic cirrhosis [Unknown]
  - Depression [Unknown]
  - Diabetes mellitus [Unknown]
  - Ischaemic cardiomyopathy [Unknown]
  - Cardiac disorder [Unknown]
  - Arthropathy [Unknown]
  - Cardiac failure congestive [Fatal]

NARRATIVE: CASE EVENT DATE: 2020
